FAERS Safety Report 20869361 (Version 5)
Quarter: 2022Q3

REPORT INFORMATION
  Report Type: Report from Study
  Country: CN (occurrence: None)
  Receive Date: 20220524
  Receipt Date: 20220707
  Transmission Date: 20221026
  Serious: Yes (Hospitalization)
  Sender: FDA-Public Use
  Company Number: CN-ROCHE-3101217

PATIENT
  Age: 64 Year
  Sex: Male
  Weight: 54 kg

DRUGS (27)
  1. BEVACIZUMAB [Suspect]
     Active Substance: BEVACIZUMAB
     Indication: Non-small cell lung cancer
     Route: 041
     Dates: start: 20220407
  2. BEVACIZUMAB [Suspect]
     Active Substance: BEVACIZUMAB
     Route: 041
     Dates: start: 20220315
  3. BEVACIZUMAB [Suspect]
     Active Substance: BEVACIZUMAB
     Route: 041
     Dates: start: 20220427
  4. BEVACIZUMAB [Suspect]
     Active Substance: BEVACIZUMAB
     Route: 041
     Dates: start: 20220614
  5. PACLITAXEL [Suspect]
     Active Substance: PACLITAXEL
     Indication: Non-small cell lung cancer
     Route: 041
     Dates: start: 20220315
  6. PACLITAXEL [Suspect]
     Active Substance: PACLITAXEL
     Route: 041
     Dates: start: 20220407
  7. PACLITAXEL [Suspect]
     Active Substance: PACLITAXEL
     Route: 041
     Dates: start: 20220427
  8. PACLITAXEL [Suspect]
     Active Substance: PACLITAXEL
     Route: 041
     Dates: start: 20220614
  9. CARBOPLATIN [Suspect]
     Active Substance: CARBOPLATIN
     Indication: Non-small cell lung cancer
     Route: 041
     Dates: start: 20220315
  10. CARBOPLATIN [Suspect]
     Active Substance: CARBOPLATIN
     Route: 041
     Dates: start: 20220407
  11. CARBOPLATIN [Suspect]
     Active Substance: CARBOPLATIN
     Route: 041
     Dates: start: 20220427
  12. CARBOPLATIN [Suspect]
     Active Substance: CARBOPLATIN
     Route: 041
     Dates: start: 20220614
  13. CAFFEIC ACID [Concomitant]
     Active Substance: CAFFEIC ACID
     Route: 048
     Dates: start: 20220318
  14. LEUCOGEN [Concomitant]
     Active Substance: LEUCOGEN
     Route: 048
     Dates: start: 20220407, end: 20220407
  15. METHYLCOBALAMIN [Concomitant]
     Active Substance: METHYLCOBALAMIN
     Route: 048
     Dates: start: 20220428
  16. HUMAN GRANULOCYTE STIMULATING FACTOR NEEDLE (UNK INGREDIENTS) [Concomitant]
     Indication: White blood cell count increased
     Route: 058
     Dates: start: 20220505, end: 20220510
  17. HUMAN GRANULOCYTE STIMULATING FACTOR NEEDLE (UNK INGREDIENTS) [Concomitant]
     Dosage: 100 MCG
     Route: 058
     Dates: start: 20220428, end: 20220428
  18. HUMAN GRANULOCYTE STIMULATING FACTOR NEEDLE (UNK INGREDIENTS) [Concomitant]
     Route: 058
     Dates: start: 20220617, end: 20220618
  19. THROMBOPOIETIN [Concomitant]
     Active Substance: THROMBOPOIETIN
     Indication: Platelet count increased
     Route: 058
     Dates: start: 20220505, end: 20220515
  20. GINKGO [Concomitant]
     Active Substance: GINKGO
     Route: 048
     Dates: start: 20220208, end: 20220226
  21. ATORVASTATIN CALCIUM [Concomitant]
     Active Substance: ATORVASTATIN CALCIUM
     Route: 048
     Dates: start: 20220316
  22. DEXAMETHASONE [Concomitant]
     Active Substance: DEXAMETHASONE
     Route: 048
     Dates: start: 20220427, end: 20220427
  23. DEXAMETHASONE [Concomitant]
     Active Substance: DEXAMETHASONE
     Route: 041
     Dates: start: 20220427, end: 20220427
  24. PROMETHAZINE HYDROCHLORIDE [Concomitant]
     Active Substance: PROMETHAZINE HYDROCHLORIDE
     Route: 030
     Dates: start: 20220427, end: 20220427
  25. OMEPRAZOLE [Concomitant]
     Active Substance: OMEPRAZOLE
     Route: 041
     Dates: start: 20220427, end: 20220427
  26. AZASETRON HYDROCHLORIDE [Concomitant]
     Active Substance: AZASETRON HYDROCHLORIDE
     Route: 041
     Dates: start: 20220427, end: 20220427
  27. SODIUM CHLORIDE [Concomitant]
     Active Substance: SODIUM CHLORIDE
     Dosage: IIVGTT
     Route: 041

REACTIONS (3)
  - Platelet count decreased [Unknown]
  - Anaemia [Not Recovered/Not Resolved]
  - Thrombocytopenia [Recovered/Resolved]

NARRATIVE: CASE EVENT DATE: 20220504
